FAERS Safety Report 18347244 (Version 4)
Quarter: 2020Q4

REPORT INFORMATION
  Report Type: Spontaneous
  Country: NL (occurrence: NL)
  Receive Date: 20201005
  Receipt Date: 20201223
  Transmission Date: 20210114
  Serious: Yes (Other)
  Sender: FDA-Public Use
  Company Number: NL-ROCHE-2688783

PATIENT
  Age: 11 Year
  Sex: Male

DRUGS (21)
  1. HEMLIBRA [Suspect]
     Active Substance: EMICIZUMAB-KXWH
     Dosage: STOP EMICIZUMAB ON 19/OCT
     Route: 058
     Dates: start: 20201008
  2. HEMLIBRA [Suspect]
     Active Substance: EMICIZUMAB-KXWH
     Route: 058
     Dates: start: 20201001
  3. REFACTO [Suspect]
     Active Substance: ANTIHEMOPHILIC FACTOR, HUMAN RECOMBINANT RESIDUES 743-1636 DELETED
     Indication: PROPHYLAXIS
     Route: 065
     Dates: start: 20200921
  4. BUMETANIDE. [Concomitant]
     Active Substance: BUMETANIDE
  5. CARVEDILOL. [Concomitant]
     Active Substance: CARVEDILOL
     Dosage: 2 X 6.25 MG
  6. REFACTO [Suspect]
     Active Substance: ANTIHEMOPHILIC FACTOR, HUMAN RECOMBINANT RESIDUES 743-1636 DELETED
     Route: 065
     Dates: start: 20201019
  7. FLIXOTIDE [Concomitant]
     Active Substance: FLUTICASONE PROPIONATE
  8. HEMLIBRA [Suspect]
     Active Substance: EMICIZUMAB-KXWH
     Route: 058
     Dates: start: 20200917
  9. DIGOXIN. [Concomitant]
     Active Substance: DIGOXIN
  10. HEMLIBRA [Suspect]
     Active Substance: EMICIZUMAB-KXWH
     Route: 058
     Dates: start: 20200903
  11. HEMLIBRA [Suspect]
     Active Substance: EMICIZUMAB-KXWH
     Indication: POOR VENOUS ACCESS
     Route: 065
     Dates: start: 20200827
  12. HEMLIBRA [Suspect]
     Active Substance: EMICIZUMAB-KXWH
     Route: 058
     Dates: start: 20200910
  13. REFACTO [Suspect]
     Active Substance: ANTIHEMOPHILIC FACTOR, HUMAN RECOMBINANT RESIDUES 743-1636 DELETED
     Indication: HAEMORRHAGE
     Route: 065
  14. VENTOLIN [Concomitant]
     Active Substance: ALBUTEROL SULFATE
     Dosage: OCCASIONALLY WHEN NEEDED
  15. ENALAPRIL [Concomitant]
     Active Substance: ENALAPRIL
     Dosage: 2 X 3.75 MG
  16. CYKLOKAPRON [Concomitant]
     Active Substance: TRANEXAMIC ACID
     Dosage: IF NEEDED
  17. REFACTO [Suspect]
     Active Substance: ANTIHEMOPHILIC FACTOR, HUMAN RECOMBINANT RESIDUES 743-1636 DELETED
     Indication: TOOTH EXTRACTION
     Route: 065
  18. REFACTO [Suspect]
     Active Substance: ANTIHEMOPHILIC FACTOR, HUMAN RECOMBINANT RESIDUES 743-1636 DELETED
     Route: 065
     Dates: start: 20200927
  19. REFACTO [Suspect]
     Active Substance: ANTIHEMOPHILIC FACTOR, HUMAN RECOMBINANT RESIDUES 743-1636 DELETED
     Route: 065
     Dates: start: 20200925
  20. REFACTO [Suspect]
     Active Substance: ANTIHEMOPHILIC FACTOR, HUMAN RECOMBINANT RESIDUES 743-1636 DELETED
     Route: 065
     Dates: start: 20200928
  21. SPIRONOLACTONE. [Concomitant]
     Active Substance: SPIRONOLACTONE

REACTIONS (5)
  - Haemorrhage [Unknown]
  - Drug ineffective [Unknown]
  - Hypersensitivity [Unknown]
  - Muscle haemorrhage [Unknown]
  - Tooth extraction [Unknown]

NARRATIVE: CASE EVENT DATE: 20200917
